FAERS Safety Report 20053666 (Version 1)
Quarter: 2021Q4

REPORT INFORMATION
  Report Type: Spontaneous
  Country: IN (occurrence: IN)
  Receive Date: 20211110
  Receipt Date: 20211110
  Transmission Date: 20220304
  Serious: Yes (Death, Other)
  Sender: FDA-Public Use
  Company Number: IN-PFIZER INC-2020012142

PATIENT
  Age: 65 Year
  Sex: Female

DRUGS (2)
  1. SUTENT [Suspect]
     Active Substance: SUNITINIB MALATE
     Indication: Metastatic renal cell carcinoma
     Dosage: 37.5 MG, CYCLIC (ONCE A DAY 2 WEEKS ON AND 2 WEEKS OFF)
     Route: 048
     Dates: start: 20181025, end: 20210927
  2. EPTOIN [Concomitant]
     Active Substance: PHENYTOIN SODIUM
     Dosage: UNK (100MG -200MG)

REACTIONS (24)
  - Neoplasm progression [Fatal]
  - Seizure [Not Recovered/Not Resolved]
  - Asthenia [Unknown]
  - Gait inability [Unknown]
  - Platelet count decreased [Unknown]
  - Hand fracture [Unknown]
  - Pulmonary mass [Unknown]
  - Osteolysis [Not Recovered/Not Resolved]
  - Nodule [Unknown]
  - Oedema [Unknown]
  - Diarrhoea [Unknown]
  - Eructation [Unknown]
  - Hunger [Unknown]
  - Skin discolouration [Unknown]
  - Blood glucose abnormal [Unknown]
  - Blood pressure abnormal [Unknown]
  - Headache [Unknown]
  - Pain in extremity [Not Recovered/Not Resolved]
  - Back pain [Not Recovered/Not Resolved]
  - Bone pain [Not Recovered/Not Resolved]
  - Haemoglobin decreased [Unknown]
  - Rash [Unknown]
  - Off label use [Unknown]
  - Product use issue [Unknown]

NARRATIVE: CASE EVENT DATE: 20191214
